FAERS Safety Report 4346675-7 (Version None)
Quarter: 2004Q2

REPORT INFORMATION
  Report Type: 
  Country: None (occurrence: None)
  Receive Date: 20040426
  Receipt Date: 20040412
  Transmission Date: 20050107
  Serious: Yes (Hospitalization)
  Sender: FDA-Public Use
  Company Number: FR-ROCHE-364090

PATIENT
  Age: 30 Year
  Sex: Female

DRUGS (3)
  1. LOXEN [Suspect]
     Indication: PREMATURE LABOUR
     Dosage: INITIAL DOSE 3MG/H INCREASED TO MAXIMUM FLOW RATE OF 4 MG/H.
     Route: 042
     Dates: start: 20020204, end: 20020205
  2. CELESTENE [Suspect]
     Route: 030
     Dates: start: 20020204, end: 20020205
  3. SPASFON [Concomitant]
     Dates: start: 20020115

REACTIONS (4)
  - COMPLICATIONS OF MATERNAL EXPOSURE TO THERAPEUTIC DRUGS [None]
  - EJECTION FRACTION ABNORMAL [None]
  - ELECTROCARDIOGRAM REPOLARISATION ABNORMALITY [None]
  - PULMONARY OEDEMA [None]
